FAERS Safety Report 6538110-5 (Version None)
Quarter: 2010Q1

REPORT INFORMATION
  Report Type: 
  Country: None (occurrence: None)
  Receive Date: 20100114
  Receipt Date: 20100104
  Transmission Date: 20100710
  Serious: Yes (Death)
  Sender: FDA-Public Use
  Company Number: US-PFIZER INC-2010001377

PATIENT
  Age: 30 Year
  Sex: Female

DRUGS (3)
  1. PIROXICAM [Suspect]
     Route: 065
  2. FENTANYL [Suspect]
     Route: 003
  3. IBUPROFEN [Suspect]
     Route: 065

REACTIONS (3)
  - CARDIAC ARREST [None]
  - DEATH [None]
  - RESPIRATORY ARREST [None]
